FAERS Safety Report 15816997 (Version 1)
Quarter: 2019Q1

REPORT INFORMATION
  Report Type: Spontaneous
  Country: US (occurrence: US)
  Receive Date: 20190113
  Receipt Date: 20190113
  Transmission Date: 20190417
  Serious: No
  Sender: FDA-Public Use
  Company Number: US-COOPERSURGICAL, INC.-US-2018CPS000235

PATIENT

DRUGS (1)
  1. PARAGARD T 380A [Suspect]
     Active Substance: COPPER
     Indication: CONTRACEPTION
     Dosage: UNK
     Route: 015
     Dates: start: 20080516, end: 20180306

REACTIONS (7)
  - Haemorrhage [Unknown]
  - Complication of device removal [Unknown]
  - Device breakage [Unknown]
  - Uterine disorder [Unknown]
  - Embedded device [Unknown]
  - Device dislocation [Unknown]
  - Pain [Unknown]

NARRATIVE: CASE EVENT DATE: 2008
